FAERS Safety Report 4876917-0 (Version None)
Quarter: 2005Q4

REPORT INFORMATION
  Report Type: 
  Country: None (occurrence: None)
  Receive Date: 20051206
  Receipt Date: 20050725
  Transmission Date: 20060501
  Serious: No
  Sender: FDA-Public Use
  Company Number: USA0507103825

PATIENT
  Age: 38 Year
  Sex: Female

DRUGS (2)
  1. CYMBALTA [Suspect]
     Dosage: 30 MG
     Dates: start: 20050505, end: 20050718
  2. PREDNISONE [Concomitant]

REACTIONS (2)
  - FEELING ABNORMAL [None]
  - HEART RATE DECREASED [None]
